FAERS Safety Report 16206886 (Version 1)
Quarter: 2019Q2

REPORT INFORMATION
  Report Type: Spontaneous
  Country: US (occurrence: US)
  Receive Date: 20190313
  Receipt Date: 20190313
  Transmission Date: 20190711
  Serious: No
  Sender: FDA-Public Use
  Company Number: None

PATIENT
  Age: 29 Year
  Sex: Female
  Weight: 46.72 kg

DRUGS (1)
  1. BUPRENOPHINE NALOXONE 8/2MG [Suspect]
     Active Substance: BUPRENORPHINE\NALOXONE
     Indication: DRUG USE DISORDER
     Route: 060
     Dates: start: 20190226

REACTIONS (5)
  - Tongue erythema [None]
  - Oral mucosal erythema [None]
  - Stomatitis [None]
  - Glossodynia [None]
  - Nausea [None]

NARRATIVE: CASE EVENT DATE: 20190301
